FAERS Safety Report 5008532-2 (Version None)
Quarter: 2006Q2

REPORT INFORMATION
  Report Type: 
  Country: None (occurrence: None)
  Receive Date: 20060522
  Receipt Date: 20060522
  Transmission Date: 20061013
  Serious: Yes (Disabling)
  Sender: FDA-Public Use
  Company Number: None

PATIENT
  Age: 52 Year
  Sex: Male
  Weight: 118.3888 kg

DRUGS (2)
  1. EXENATIDE 5 MCG/0.02ML PEN INJECTOR [Suspect]
     Indication: BLOOD GLUCOSE ABNORMAL
     Dosage: BID ONE HOUR BEFORE SQ
     Route: 058
     Dates: start: 20060202, end: 20060518
  2. EXENATIDE 5 MCG/0.02ML PEN INJECTOR [Suspect]
     Indication: OBESITY
     Dosage: BID ONE HOUR BEFORE SQ
     Route: 058
     Dates: start: 20060202, end: 20060518

REACTIONS (1)
  - NEPHROLITHIASIS [None]
